FAERS Safety Report 22259695 (Version 2)
Quarter: 2023Q2

REPORT INFORMATION
  Report Type: Spontaneous
  Country: US (occurrence: US)
  Receive Date: 20230427
  Receipt Date: 20230519
  Transmission Date: 20230722
  Serious: No
  Sender: FDA-Public Use
  Company Number: US-PFIZER INC-PV202300076687

PATIENT
  Age: 76 Year
  Sex: Female

DRUGS (1)
  1. IBRANCE [Suspect]
     Active Substance: PALBOCICLIB
     Indication: Breast cancer metastatic
     Dosage: 100 MG BY MOUTH DAILY FOR 21 DAYS. 7 DAYS OFF, 28 DAY CYCLE
     Route: 048
     Dates: start: 20221104

REACTIONS (1)
  - Neoplasm progression [Unknown]
